FAERS Safety Report 20098002 (Version 1)
Quarter: 2021Q4

REPORT INFORMATION
  Report Type: Spontaneous
  Country: NA (occurrence: None)
  Receive Date: 20211121
  Receipt Date: 20211121
  Transmission Date: 20220304
  Serious: Yes (Life-Threatening, Disabling)
  Sender: FDA-Public Use
  Company Number: None

PATIENT
  Age: 38 Year
  Sex: Female
  Weight: 64 kg

DRUGS (2)
  1. LUPRON [Suspect]
     Active Substance: LEUPROLIDE ACETATE
     Dates: start: 20210301, end: 20210824
  2. ZOLADEX [Suspect]
     Active Substance: GOSERELIN ACETATE

REACTIONS (6)
  - Bone pain [None]
  - Arthralgia [None]
  - Migraine [None]
  - Tooth disorder [None]
  - Autoimmune disorder [None]
  - Osteopenia [None]

NARRATIVE: CASE EVENT DATE: 20210301
